FAERS Safety Report 26083352 (Version 2)
Quarter: 2025Q4

REPORT INFORMATION
  Report Type: Spontaneous
  Country: JP (occurrence: JP)
  Receive Date: 20251124
  Receipt Date: 20251218
  Transmission Date: 20260117
  Serious: Yes (Other)
  Sender: AMGEN
  Company Number: JP-DSJP-DS-2025-177875-

PATIENT
  Age: 71 Year
  Sex: Female

DRUGS (1)
  1. DENOSUMAB [Suspect]
     Active Substance: DENOSUMAB
     Indication: Osteoporosis
     Dosage: UNK
     Route: 065
     Dates: start: 202211, end: 202411

REACTIONS (2)
  - Atypical fracture [Recovered/Resolved]
  - Atypical fracture [Recovered/Resolved]

NARRATIVE: CASE EVENT DATE: 20240920
